FAERS Safety Report 7059726-6 (Version None)
Quarter: 2010Q4

REPORT INFORMATION
  Report Type: 
  Country: None (occurrence: None)
  Receive Date: 20101025
  Receipt Date: 20101015
  Transmission Date: 20110411
  Serious: Yes (Hospitalization)
  Sender: FDA-Public Use
  Company Number: JP-ABBOTT-10P-087-0665359-00

PATIENT
  Age: 70 Year
  Sex: Female
  Weight: 46.9 kg

DRUGS (15)
  1. CLARITHROMYCIN [Suspect]
     Indication: ATYPICAL MYCOBACTERIAL INFECTION
     Dates: start: 20090121, end: 20090204
  2. CLARITHROMYCIN [Suspect]
     Dates: start: 20090307, end: 20090309
  3. CLARITHROMYCIN [Suspect]
     Dates: start: 20090310, end: 20091201
  4. EBUTOL [Concomitant]
     Indication: ATYPICAL MYCOBACTERIAL INFECTION
     Dates: start: 20090121, end: 20090204
  5. EBUTOL [Concomitant]
     Dates: start: 20090220, end: 20091201
  6. RIFADIN [Concomitant]
     Indication: ATYPICAL MYCOBACTERIAL INFECTION
     Dates: start: 20090121, end: 20090204
  7. RIFADIN [Concomitant]
     Dates: start: 20090331, end: 20091201
  8. MUCOSOLVAN [Concomitant]
     Indication: PROPHYLAXIS
     Route: 048
     Dates: end: 20090204
  9. FAMOSTAGINE [Concomitant]
     Indication: PROPHYLAXIS
     Route: 048
     Dates: end: 20090202
  10. SELBEX [Concomitant]
     Indication: PROPHYLAXIS
     Route: 048
     Dates: end: 20090202
  11. GLAKAY [Concomitant]
     Indication: PROPHYLAXIS
     Route: 048
     Dates: end: 20090202
  12. CALFINA [Concomitant]
     Indication: PROPHYLAXIS
     Route: 048
     Dates: end: 20090202
  13. TALION [Concomitant]
     Indication: PROPHYLAXIS
     Route: 048
  14. NEOMALLERMIN TR [Concomitant]
     Indication: PROPHYLAXIS
     Route: 048
  15. PONCYL FP [Concomitant]
     Indication: PROPHYLAXIS
     Route: 048
     Dates: end: 20090202

REACTIONS (1)
  - ERYTHEMA [None]
